FAERS Safety Report 14393102 (Version 1)
Quarter: 2018Q1

REPORT INFORMATION
  Report Type: Spontaneous
  Country: GB (occurrence: GB)
  Receive Date: 20180116
  Receipt Date: 20180116
  Transmission Date: 20180509
  Serious: Yes (Hospitalization, Other)
  Sender: FDA-Public Use
  Company Number: GB-JUBILANT CADISTA PHARMACEUTICALS-2018JUB00003

PATIENT
  Age: 69 Year
  Sex: Female

DRUGS (7)
  1. VENLAFAXINE XL [Concomitant]
     Dosage: 75 MG, 1X/DAY
     Route: 065
  2. VENLAFAXINE XL [Concomitant]
     Dosage: 225 MG, 1X/DAY
     Route: 065
     Dates: start: 201311
  3. MIRTAZAPINE. [Concomitant]
     Active Substance: MIRTAZAPINE
     Dosage: 15 MG, 1X/DAY
     Route: 065
     Dates: start: 2013
  4. OLANZAPINE. [Suspect]
     Active Substance: OLANZAPINE
     Indication: PSYCHIATRIC SYMPTOM
     Dosage: 10 MG, 1X/DAY
     Route: 065
     Dates: start: 2013
  5. MIRTAZAPINE. [Concomitant]
     Active Substance: MIRTAZAPINE
     Dosage: 45 MG, 1X/DAY
     Dates: start: 2016
  6. OLANZAPINE. [Suspect]
     Active Substance: OLANZAPINE
     Dosage: 2.5 MG, 1X/DAY
     Route: 065
  7. VENLAFAXINE XL [Concomitant]
     Dosage: 150 MG, 1X/DAY
     Route: 065
     Dates: start: 201412

REACTIONS (2)
  - Bundle branch block right [Recovered/Resolved]
  - Electrocardiogram QT prolonged [Recovered/Resolved]
